FAERS Safety Report 19475100 (Version 1)
Quarter: 2021Q2

REPORT INFORMATION
  Report Type: Report from Study
  Country: RU (occurrence: RU)
  Receive Date: 20210630
  Receipt Date: 20210630
  Transmission Date: 20210717
  Serious: Yes (Other)
  Sender: FDA-Public Use
  Company Number: RU-TAKEDA-2021TEU005875

PATIENT

DRUGS (1)
  1. PIOGLITAZONE. [Suspect]
     Active Substance: PIOGLITAZONE
     Indication: CARBOHYDRATE METABOLISM DISORDER
     Dosage: 30 MILLIGRAM, QD
     Route: 065

REACTIONS (1)
  - Atrial fibrillation [Unknown]
